FAERS Safety Report 5290059-4 (Version None)
Quarter: 2007Q1

REPORT INFORMATION
  Report Type: 
  Country: None (occurrence: None)
  Receive Date: 20070330
  Receipt Date: 20070314
  Transmission Date: 20070707
  Serious: Yes (Life-Threatening, Hospitalization)
  Sender: FDA-Public Use
  Company Number: DSA_29581_2007

PATIENT
  Age: 16 Year
  Sex: Female

DRUGS (2)
  1. LORAZEPAM [Suspect]
     Dosage: 10 MG ONCE PO
     Route: 048
     Dates: start: 20070313, end: 20070313
  2. DISHWASHING LIQUID [Suspect]
     Dates: start: 20070313, end: 20070313

REACTIONS (3)
  - OVERDOSE [None]
  - SUICIDE ATTEMPT [None]
  - TACHYCARDIA [None]
